FAERS Safety Report 13209031 (Version 1)
Quarter: 2017Q1

REPORT INFORMATION
  Report Type: Spontaneous
  Country: US (occurrence: US)
  Receive Date: 20170209
  Receipt Date: 20170209
  Transmission Date: 20170428
  Serious: No
  Sender: FDA-Public Use
  Company Number: US-ROCHE-1744711

PATIENT
  Sex: Female

DRUGS (8)
  1. XOLAIR [Suspect]
     Active Substance: OMALIZUMAB
     Indication: PRODUCT USED FOR UNKNOWN INDICATION
     Dosage: LAST INJECTION ON: 06/APR/2016
     Route: 065
  2. BUDESONIDE. [Concomitant]
     Active Substance: BUDESONIDE
  3. HYDROCHLOROTHIAZIDE. [Concomitant]
     Active Substance: HYDROCHLOROTHIAZIDE
  4. LEVOTHYROXINE. [Concomitant]
     Active Substance: LEVOTHYROXINE
  5. COUMADIN [Concomitant]
     Active Substance: WARFARIN SODIUM
  6. METOPROLOL. [Concomitant]
     Active Substance: METOPROLOL
  7. IPRATROPIUM BROMIDE. [Concomitant]
     Active Substance: IPRATROPIUM BROMIDE
  8. OXAPROZIN. [Concomitant]
     Active Substance: OXAPROZIN

REACTIONS (1)
  - Memory impairment [Unknown]
